FAERS Safety Report 22527758 (Version 1)
Quarter: 2023Q2

REPORT INFORMATION
  Report Type: Report from Study
  Country: EG (occurrence: EG)
  Receive Date: 20230606
  Receipt Date: 20230606
  Transmission Date: 20230722
  Serious: Yes (Other)
  Sender: FDA-Public Use
  Company Number: EG-002147023-NVSC2023EG125355

PATIENT
  Age: 45 Year
  Sex: Female

DRUGS (2)
  1. TASIGNA [Suspect]
     Active Substance: NILOTINIB
     Indication: Acute myeloid leukaemia
     Dosage: 600 MG, QD, (4 CAPS)
     Route: 048
     Dates: start: 20211117, end: 202212
  2. TASIGNA [Suspect]
     Active Substance: NILOTINIB
     Dosage: 600 MG, QD, (4 CAPS)
     Route: 048
     Dates: start: 202302

REACTIONS (7)
  - Acute myeloid leukaemia [Unknown]
  - Cytogenetic analysis abnormal [Unknown]
  - Anaemia [Recovering/Resolving]
  - Platelet count decreased [Recovering/Resolving]
  - Mouth haemorrhage [Recovering/Resolving]
  - Epistaxis [Recovering/Resolving]
  - Off label use [Not Recovered/Not Resolved]

NARRATIVE: CASE EVENT DATE: 20211117
